FAERS Safety Report 10237079 (Version 1)
Quarter: 2014Q2

REPORT INFORMATION
  Report Type: Spontaneous
  Country: US (occurrence: US)
  Receive Date: 20140613
  Receipt Date: 20140613
  Transmission Date: 20141212
  Serious: Yes (Hospitalization)
  Sender: FDA-Public Use
  Company Number: US-B.I. PHARMACEUTICALS,INC./RIDGEFIELD-2014-BI-26440BP

PATIENT
  Age: 64 Year
  Sex: Male

DRUGS (7)
  1. PRADAXA [Suspect]
     Indication: ATRIAL FIBRILLATION
     Route: 048
     Dates: start: 2013
  2. METOPROLOL [Concomitant]
     Route: 048
  3. DIGOXIN [Concomitant]
     Route: 048
  4. ATORVASTATIN [Concomitant]
     Indication: BLOOD CHOLESTEROL INCREASED
     Route: 048
  5. LISINOPRIL [Concomitant]
     Indication: HYPERTENSION
     Route: 048
  6. FUROSEMIDE [Concomitant]
     Route: 048
  7. CARVEDILOL [Concomitant]
     Route: 048

REACTIONS (4)
  - Abasia [Recovered/Resolved]
  - Cartilage injury [Not Recovered/Not Resolved]
  - Pain in extremity [Recovered/Resolved]
  - Hallucination [Recovered/Resolved]
